FAERS Safety Report 7244873-6 (Version None)
Quarter: 2011Q1

REPORT INFORMATION
  Report Type: 
  Country: None (occurrence: None)
  Receive Date: 20110126
  Receipt Date: 20110119
  Transmission Date: 20110831
  Serious: No
  Sender: FDA-Public Use
  Company Number: US-PFIZER INC-2011014273

PATIENT
  Sex: Male

DRUGS (2)
  1. GABAPENTIN [Suspect]
     Dosage: 600 MG, 2X/DAY
     Dates: end: 20110101
  2. LYRICA [Suspect]
     Dosage: 50 MG, 5X/DAY
     Dates: end: 20110101

REACTIONS (2)
  - DIZZINESS [None]
  - SOMNOLENCE [None]
